FAERS Safety Report 10047519 (Version 2)
Quarter: 2014Q2

REPORT INFORMATION
  Report Type: Spontaneous
  Country: US (occurrence: US)
  Receive Date: 20140331
  Receipt Date: 20140522
  Transmission Date: 20141212
  Serious: No
  Sender: FDA-Public Use
  Company Number: US-009507513-1403USA011939

PATIENT
  Sex: Female

DRUGS (4)
  1. ASMANEX TWISTHALER [Suspect]
     Indication: ASTHMA
     Dosage: 1 PUFF (220 MCG) ONCE DAILY
     Route: 055
     Dates: start: 20110322
  2. ASMANEX TWISTHALER [Suspect]
     Dosage: 1 PUFF (220 MCG) ONCE DAILY
     Route: 055
     Dates: start: 20110322
  3. LORATADINE [Concomitant]
     Indication: HYPERSENSITIVITY
     Dosage: 10 MG DAILY
     Route: 048
     Dates: start: 20130807
  4. VENTOLIN HFA [Concomitant]
     Indication: ASTHMA
     Dosage: 90 MG DAILY
     Route: 048
     Dates: start: 20130906

REACTIONS (5)
  - Expired product administered [Unknown]
  - Product label issue [Unknown]
  - Product lot number issue [Unknown]
  - Product expiration date issue [Unknown]
  - No adverse event [Unknown]
